FAERS Safety Report 4393453-9 (Version None)
Quarter: 2004Q3

REPORT INFORMATION
  Report Type: 
  Country: None (occurrence: None)
  Receive Date: 20040701
  Receipt Date: 20040618
  Transmission Date: 20050211
  Serious: Yes (Other)
  Sender: FDA-Public Use
  Company Number: 2004041831

PATIENT
  Age: 83 Year
  Sex: Female

DRUGS (1)
  1. VFEND [Suspect]
     Indication: ILL-DEFINED DISORDER
     Dosage: ORAL
     Route: 048

REACTIONS (6)
  - ENTEROCOCCAL INFECTION [None]
  - HEAD INJURY [None]
  - RENAL IMPAIRMENT [None]
  - SEPTIC SHOCK [None]
  - SINUSITIS BACTERIAL [None]
  - SINUSITIS FUNGAL [None]
